FAERS Safety Report 9143227 (Version 1)
Quarter: 2013Q1

REPORT INFORMATION
  Report Type: Spontaneous
  Country: US (occurrence: US)
  Receive Date: 20130306
  Receipt Date: 20130306
  Transmission Date: 20140127
  Serious: No
  Sender: FDA-Public Use
  Company Number: US-ENDO PHARMACEUTICALS INC.-OPER20110067

PATIENT
  Sex: Female
  Weight: 64.47 kg

DRUGS (1)
  1. OPANA ER [Suspect]
     Indication: HYPOAESTHESIA
     Route: 048

REACTIONS (4)
  - Dry eye [Recovering/Resolving]
  - Balance disorder [Unknown]
  - Depression [Unknown]
  - Drug ineffective [Unknown]
